FAERS Safety Report 8238474-0 (Version None)
Quarter: 2012Q1

REPORT INFORMATION
  Report Type: 
  Country: None (occurrence: None)
  Receive Date: 20120327
  Receipt Date: 20120320
  Transmission Date: 20120608
  Serious: Yes (Other)
  Sender: FDA-Public Use
  Company Number: DE-PFIZER INC-2012071952

PATIENT
  Sex: Male

DRUGS (2)
  1. ATORVASTATIN CALCIUM [Suspect]
     Dosage: 10 MG, DAILY
     Dates: start: 20070501
  2. ATORVASTATIN CALCIUM [Suspect]
     Dosage: UNK
     Dates: start: 20120101

REACTIONS (5)
  - PERIPHERAL COLDNESS [None]
  - ACNE [None]
  - MYOCARDIAL INFARCTION [None]
  - BREAST PAIN [None]
  - DRUG INEFFECTIVE [None]
